FAERS Safety Report 6457517-8 (Version None)
Quarter: 2009Q4

REPORT INFORMATION
  Report Type: 
  Country: None (occurrence: None)
  Receive Date: 20091125
  Receipt Date: 20091113
  Transmission Date: 20100525
  Serious: Yes (Other)
  Sender: FDA-Public Use
  Company Number: PHHY2009CA44927

PATIENT
  Age: 83 Year

DRUGS (1)
  1. DIOVAN [Suspect]
     Dosage: UNK
     Dates: start: 20090730

REACTIONS (1)
  - CEREBROVASCULAR ACCIDENT [None]
